FAERS Safety Report 8551049-9 (Version None)
Quarter: 2012Q3

REPORT INFORMATION
  Report Type: 
  Country: None (occurrence: None)
  Receive Date: 20120730
  Receipt Date: 20120719
  Transmission Date: 20120928
  Serious: Yes (Other)
  Sender: FDA-Public Use
  Company Number: PHFR2012GB004063

PATIENT
  Sex: Female
  Weight: 50 kg

DRUGS (7)
  1. AZATHIOPRINE [Concomitant]
     Dosage: 100 MG,
  2. PREDNISOLONE [Suspect]
     Indication: SARCOIDOSIS
     Dosage: 10 MG, DAILY
     Route: 048
     Dates: start: 20051120
  3. LAMOTRIGINE [Concomitant]
     Dosage: 50 MG, BID
  4. SIMVASTATIN [Concomitant]
     Dosage: 50 MG,
  5. DICLOFENAC SODIUM [Suspect]
     Indication: OSTEOPOROSIS
     Dosage: 150 MG, DAILY
     Route: 048
     Dates: start: 20051110
  6. ALENDRONATE SODIUM [Concomitant]
     Dosage: 70 MG,
  7. OMEPRAZOLE MAGNESIUM [Concomitant]
     Dosage: 40 MG,

REACTIONS (4)
  - ARTHRALGIA [None]
  - OSTEOPOROSIS [None]
  - PULMONARY SARCOIDOSIS [None]
  - EPILEPSY [None]
